FAERS Safety Report 10206452 (Version 1)
Quarter: 2014Q2

REPORT INFORMATION
  Report Type: Spontaneous
  Country: US (occurrence: None)
  Receive Date: 20140528
  Receipt Date: 20140528
  Transmission Date: 20141212
  Serious: No
  Sender: FDA-Public Use
  Company Number: None

PATIENT
  Age: 77 Year
  Sex: Male

DRUGS (2)
  1. ATORVASTATIN [Suspect]
     Indication: HYPERLIPIDAEMIA
     Dates: start: 20120814, end: 20121213
  2. TUMERIC ROOT [Concomitant]

REACTIONS (9)
  - Drug-induced liver injury [None]
  - Fatigue [None]
  - Decreased appetite [None]
  - Jaundice [None]
  - Hepatic necrosis [None]
  - Scar [None]
  - Urticaria [None]
  - Cholestasis [None]
  - Hepatitis [None]
